FAERS Safety Report 6099479-1 (Version None)
Quarter: 2009Q1

REPORT INFORMATION
  Report Type: 
  Country: None (occurrence: None)
  Receive Date: 20090303
  Receipt Date: 20090223
  Transmission Date: 20090719
  Serious: Yes (Hospitalization, Other)
  Sender: FDA-Public Use
  Company Number: US-ELI_LILLY_AND_COMPANY-US200808003292

PATIENT
  Sex: Male
  Weight: 126.98 kg

DRUGS (14)
  1. BYETTA [Suspect]
     Indication: TYPE 2 DIABETES MELLITUS
     Dosage: 5 UG, 2/D
     Route: 058
     Dates: start: 20060101
  2. BYETTA [Suspect]
     Dosage: 10 UG, 2/D
     Route: 058
  3. ISOSORB /00586302/ [Concomitant]
     Indication: CARDIAC DISORDER
     Dosage: 60 MG, DAILY (1/D)
     Route: 048
  4. INDERAL [Concomitant]
     Dosage: 60 MG, DAILY (1/D)
  5. LISINOPRIL AND HYDROCHLOROTHIAZIDE [Concomitant]
     Dosage: UNK, DAILY (1/D)
  6. LESCOL XL [Concomitant]
     Dosage: 80 MG, DAILY (1/D)
  7. METFORMIN HCL [Concomitant]
     Indication: TYPE 2 DIABETES MELLITUS
     Dosage: 500 MG, EACH EVENING
  8. GLIMEPIRIDE [Concomitant]
     Indication: TYPE 2 DIABETES MELLITUS
     Dosage: 4 MG, UNK
  9. ASPIRIN [Concomitant]
     Dosage: 81 MG, DAILY (1/D)
  10. VITAMIN B-12 [Concomitant]
     Dosage: 600 UG, DAILY (1/D)
  11. MULTI-VITAMIN [Concomitant]
  12. SAW PALMETTO [Concomitant]
     Dosage: 450 MG, DAILY (1/D)
  13. VITAMIN E [Concomitant]
     Dosage: UNK, DAILY (1/D)
  14. CHROMIUM PICOLINATE [Concomitant]
     Dosage: 500 D/F, DAILY (1/D)

REACTIONS (9)
  - BRADYCARDIA [None]
  - CORONARY ARTERY DISEASE [None]
  - CORONARY ARTERY STENOSIS [None]
  - DEHYDRATION [None]
  - DRUG INEFFECTIVE [None]
  - DYSPNOEA [None]
  - HYPOTENSION [None]
  - SYNCOPE [None]
  - WEIGHT DECREASED [None]
